FAERS Safety Report 5228980-5 (Version None)
Quarter: 2007Q1

REPORT INFORMATION
  Report Type: 
  Country: None (occurrence: None)
  Receive Date: 20070205
  Receipt Date: 20070123
  Transmission Date: 20070707
  Serious: Yes (Other)
  Sender: FDA-Public Use
  Company Number: DE-ELI_LILLY_AND_COMPANY-DE200701004853

PATIENT
  Sex: Female

DRUGS (3)
  1. CYMBALTA [Suspect]
     Dosage: 120 MG, DAILY (1/D)
     Route: 048
  2. QUILONIUM-R [Concomitant]
     Dosage: UNK, 2/D
     Route: 048
  3. DIPIPERON [Concomitant]
     Dosage: 80 MG, DAILY (1/D)
     Route: 048

REACTIONS (1)
  - PARKINSONISM [None]
